FAERS Safety Report 11906893 (Version 4)
Quarter: 2018Q4

REPORT INFORMATION
  Report Type: Spontaneous
  Country: US (occurrence: US)
  Receive Date: 20160111
  Receipt Date: 20181217
  Transmission Date: 20190204
  Serious: No
  Sender: FDA-Public Use
  Company Number: US-PFIZER INC-2015450938

PATIENT
  Age: 48 Year
  Sex: Female

DRUGS (2)
  1. SOMAVERT [Suspect]
     Active Substance: PEGVISOMANT
     Dosage: 30 MG, DAILY
     Route: 058
     Dates: start: 20151119
  2. SOMAVERT [Suspect]
     Active Substance: PEGVISOMANT
     Indication: ACROMEGALY
     Dosage: 10 MG, DAILY (ONCE A DAY)
     Dates: start: 201509

REACTIONS (8)
  - Hypoglycaemia [Unknown]
  - Hyperglycaemia [Unknown]
  - Diarrhoea [Unknown]
  - Alopecia [Not Recovered/Not Resolved]
  - Insomnia [Unknown]
  - Injection site reaction [Unknown]
  - Arthritis [Unknown]
  - Constipation [Unknown]

NARRATIVE: CASE EVENT DATE: 2015
